FAERS Safety Report 7829166-8 (Version None)
Quarter: 2011Q4

REPORT INFORMATION
  Report Type: 
  Country: None (occurrence: None)
  Receive Date: 20111020
  Receipt Date: 20111014
  Transmission Date: 20120403
  Serious: Yes (Hospitalization, Other)
  Sender: FDA-Public Use
  Company Number: PHEH2006US02522

PATIENT
  Sex: Female

DRUGS (42)
  1. AREDIA [Suspect]
     Dosage: UNK
     Dates: start: 20000614
  2. MELATONIN [Concomitant]
  3. EPOGEN [Concomitant]
     Dosage: 40000 U, QW
  4. COMPAZINE [Concomitant]
  5. SEPTRA DS [Concomitant]
  6. PHENERGAN [Concomitant]
  7. NYQUIL [Concomitant]
  8. CELEXA [Concomitant]
  9. VALIUM [Concomitant]
  10. ENALAPRIL ^1A FARMA^ [Concomitant]
     Dosage: 10 MG, QD
     Route: 048
  11. COLACE [Concomitant]
  12. EPOGEN [Concomitant]
  13. POTASSIUM [Concomitant]
  14. SOMA [Concomitant]
  15. NEURONTIN [Concomitant]
  16. KEFLEX [Concomitant]
  17. ZITHROMAX [Concomitant]
     Dosage: 250 MG, QD
     Route: 048
  18. ARIMIDEX [Concomitant]
     Dosage: UNK
  19. BISPHOSPHONATES [Concomitant]
     Dates: end: 20050901
  20. SSRI [Concomitant]
  21. ALLEGRA [Concomitant]
  22. PROFEN II [Concomitant]
  23. TYLENOL-500 [Concomitant]
  24. TRAMADOL HCL [Concomitant]
     Dosage: 50 MG, PRN
     Route: 048
  25. NAPROXEN [Concomitant]
     Dosage: 500 MG, PRN
     Route: 048
  26. ADRIAMYCIN + TAXOL [Concomitant]
     Dosage: UNK
     Dates: start: 20000501
  27. ATIVAN [Concomitant]
  28. CARISOPRODOL [Concomitant]
  29. CHEMOTHERAPEUTICS NOS [Concomitant]
  30. PENICILLIN ^GRUNENTHAL^ [Concomitant]
  31. PERIDEX [Concomitant]
  32. TAMOXIFEN CITRATE [Concomitant]
  33. ROBITUSSIN ^ROBINS^ [Concomitant]
  34. METHOCARBAMOL [Concomitant]
     Dosage: 500 MG, UNK
     Route: 048
  35. FASLODEX [Concomitant]
     Dosage: UNK
  36. ALPRAZOLAM [Concomitant]
     Dosage: UNK
     Route: 048
  37. FEMARA [Concomitant]
     Dosage: UNK
     Route: 048
  38. ZOFRAN [Concomitant]
  39. MIRACLE MOUTHWASH [Concomitant]
  40. ZOMETA [Suspect]
     Indication: BREAST CANCER METASTATIC
     Dosage: UNK
     Dates: end: 20080407
  41. XANAX [Concomitant]
     Indication: ANXIETY
  42. AMOXIL ^AYERST LAB^ [Concomitant]

REACTIONS (83)
  - OSTEOMYELITIS [None]
  - TOOTHACHE [None]
  - IMPAIRED HEALING [None]
  - JOINT RANGE OF MOTION DECREASED [None]
  - MENTAL STATUS CHANGES [None]
  - CERVICAL DYSPLASIA [None]
  - BACK PAIN [None]
  - GASTRIC ULCER [None]
  - DECREASED APPETITE [None]
  - OTITIS MEDIA [None]
  - OBESITY [None]
  - HYPOAESTHESIA [None]
  - HEARING IMPAIRED [None]
  - SWELLING [None]
  - COUGH [None]
  - MUSCULAR WEAKNESS [None]
  - MUSCLE STRAIN [None]
  - RASH [None]
  - ORAL PAIN [None]
  - VERTEBRAL FORAMINAL STENOSIS [None]
  - INGROWING NAIL [None]
  - HUMAN PAPILLOMA VIRUS TEST POSITIVE [None]
  - DENTAL CARIES [None]
  - BREAST INDURATION [None]
  - METASTASES TO BONE [None]
  - GAIT DISTURBANCE [None]
  - VIITH NERVE PARALYSIS [None]
  - GINGIVITIS [None]
  - INTERVERTEBRAL DISC PROTRUSION [None]
  - NAIL AVULSION [None]
  - CARCINOEMBRYONIC ANTIGEN INCREASED [None]
  - TYPE V HYPERLIPIDAEMIA [None]
  - INJURY [None]
  - OEDEMA MOUTH [None]
  - HIATUS HERNIA [None]
  - GASTROOESOPHAGEAL REFLUX DISEASE [None]
  - TONGUE ULCERATION [None]
  - HYPERTRIGLYCERIDAEMIA [None]
  - ARTHROPATHY [None]
  - DENTAL PLAQUE [None]
  - HYPERTENSION [None]
  - RHINITIS ALLERGIC [None]
  - TOOTH LOSS [None]
  - FACIAL PAIN [None]
  - DEPRESSION [None]
  - INSOMNIA [None]
  - URINARY TRACT INFECTION [None]
  - TOOTH ABSCESS [None]
  - CHOLELITHIASIS [None]
  - POOR PERSONAL HYGIENE [None]
  - HORDEOLUM [None]
  - MOUTH ULCERATION [None]
  - PANIC DISORDER [None]
  - AGITATION [None]
  - OSTEOPENIA [None]
  - ADRENAL MASS [None]
  - RENAL CYST [None]
  - DIVERTICULUM INTESTINAL [None]
  - PHYSICAL DISABILITY [None]
  - TOOTH EROSION [None]
  - OSTEONECROSIS OF JAW [None]
  - EXOSTOSIS [None]
  - TRISMUS [None]
  - TOOTH FRACTURE [None]
  - RIB FRACTURE [None]
  - TREMOR [None]
  - DERMAL CYST [None]
  - SCOLIOSIS [None]
  - SPINAL OSTEOARTHRITIS [None]
  - ONYCHOMYCOSIS [None]
  - TOOTH INFECTION [None]
  - LIMB INJURY [None]
  - PAIN IN JAW [None]
  - EMOTIONAL DISTRESS [None]
  - OPEN WOUND [None]
  - BONE DISORDER [None]
  - ANXIETY [None]
  - ANOGENITAL WARTS [None]
  - UROSEPSIS [None]
  - CONJUNCTIVITIS [None]
  - TACHYCARDIA [None]
  - FOOT DEFORMITY [None]
  - OSTEOPOROSIS [None]
